FAERS Safety Report 20158936 (Version 1)
Quarter: 2021Q4

REPORT INFORMATION
  Report Type: Spontaneous
  Country: CA (occurrence: None)
  Receive Date: 20211208
  Receipt Date: 20211208
  Transmission Date: 20220303
  Serious: Yes (Other)
  Sender: FDA-Public Use
  Company Number: CA-ROCHE-2975165

PATIENT
  Age: 62 Year
  Sex: Female
  Weight: 78 kg

DRUGS (13)
  1. ESBRIET [Suspect]
     Active Substance: PIRFENIDONE
     Indication: Idiopathic pulmonary fibrosis
     Dosage: THERAPY DURATION: 47
     Route: 048
  2. ESBRIET [Suspect]
     Active Substance: PIRFENIDONE
     Dosage: THERAPY DURATION: -165
     Route: 048
  3. ESBRIET [Suspect]
     Active Substance: PIRFENIDONE
     Dosage: THERAPY DURATION: -173
     Route: 048
  4. ESBRIET [Suspect]
     Active Substance: PIRFENIDONE
     Dosage: THERAPY DURATION: -40
     Route: 048
  5. ESBRIET [Suspect]
     Active Substance: PIRFENIDONE
     Dosage: THERAPY DURATION: -33
     Route: 048
  6. ESBRIET [Suspect]
     Active Substance: PIRFENIDONE
     Route: 048
  7. ESBRIET [Suspect]
     Active Substance: PIRFENIDONE
     Indication: Idiopathic pulmonary fibrosis
     Route: 048
  8. BUDESONIDE\FORMOTEROL FUMARATE [Concomitant]
     Active Substance: BUDESONIDE\FORMOTEROL FUMARATE
  9. PREVACID [Concomitant]
     Active Substance: LANSOPRAZOLE
  10. CETIRIZINE HYDROCHLORIDE [Concomitant]
     Active Substance: CETIRIZINE HYDROCHLORIDE
     Route: 065
  11. VENTOLIN [Concomitant]
     Active Substance: ALBUTEROL SULFATE
     Route: 065
  12. VITAMIN C [Concomitant]
     Active Substance: ASCORBIC ACID
  13. ZOPICLONE [Concomitant]
     Active Substance: ZOPICLONE
     Route: 065

REACTIONS (9)
  - Dizziness [Not Recovered/Not Resolved]
  - Dyspnoea exertional [Not Recovered/Not Resolved]
  - Emphysema [Not Recovered/Not Resolved]
  - Headache [Not Recovered/Not Resolved]
  - Oxygen saturation decreased [Not Recovered/Not Resolved]
  - Pruritus [Not Recovered/Not Resolved]
  - Pulmonary function test abnormal [Not Recovered/Not Resolved]
  - Rash papular [Not Recovered/Not Resolved]
  - Weight decreased [Not Recovered/Not Resolved]
